FAERS Safety Report 14987831 (Version 2)
Quarter: 2018Q3

REPORT INFORMATION
  Report Type: Report from Study
  Country: CA (occurrence: CA)
  Receive Date: 20180608
  Receipt Date: 20180817
  Transmission Date: 20181010
  Serious: Yes (Death)
  Sender: FDA-Public Use
  Company Number: CA-HLSUS-2018-CA-000874

PATIENT
  Age: 47 Year
  Sex: Male

DRUGS (2)
  1. CLOZAPINE. [Suspect]
     Active Substance: CLOZAPINE
     Indication: PRODUCT USED FOR UNKNOWN INDICATION
  2. PALIPERIDONE PALMITATE [Concomitant]
     Active Substance: PALIPERIDONE PALMITATE
     Indication: PRODUCT USED FOR UNKNOWN INDICATION
     Dosage: 150MG 1 EVERY 28 DAYS
     Route: 030

REACTIONS (7)
  - Death [Fatal]
  - Drug ineffective [Unknown]
  - Electrocardiogram QT prolonged [Fatal]
  - Refusal of examination [Fatal]
  - Therapy non-responder [Fatal]
  - Torsade de pointes [Fatal]
  - Arrhythmia [Fatal]
